FAERS Safety Report 7990474 (Version 5)
Quarter: 2013Q4

REPORT INFORMATION
  Report Type: Spontaneous
  Country: US (occurrence: US)
  Receive Date: 20110614
  Receipt Date: 20131126
  Transmission Date: 20140711
  Serious: Yes (Hospitalization)
  Sender: FDA-Public Use
  Company Number: US-B.I. PHARMACEUTICALS,INC./RIDGEFIELD-2011-BP-15058BP

PATIENT
  Age: 60 Year
  Sex: Male
  Weight: 108.86 kg

DRUGS (16)
  1. PRADAXA [Suspect]
     Indication: ATRIAL FIBRILLATION
     Dosage: 300 MG
     Route: 048
     Dates: start: 20110501, end: 20110610
  2. PRADAXA [Suspect]
     Indication: ANTICOAGULANT THERAPY
  3. TIKOSYN [Concomitant]
     Indication: ARRHYTHMIA
     Dosage: 1 MG
     Dates: start: 2005
  4. ALLOPURINOL [Concomitant]
     Indication: GOUT
     Dosage: 100 MG
     Dates: start: 2000
  5. COREG [Concomitant]
     Indication: HYPERTENSION
     Dosage: 50 MG
     Dates: start: 2005
  6. FUROSEMIDE [Concomitant]
     Indication: DIURETIC THERAPY
     Dosage: 20 MG
     Dates: start: 2005
  7. RAMIPRIL [Concomitant]
     Indication: HYPERTENSION
     Dosage: 20 MG
     Dates: start: 2005
  8. BUPROPION [Concomitant]
     Indication: DEPRESSION
     Dosage: 150 MG
     Dates: start: 2005
  9. GEMFIBROZIL [Concomitant]
     Indication: BLOOD CHOLESTEROL INCREASED
     Dosage: 1200 MG
     Dates: start: 2005
  10. MELOXICAM (GENERIC) [Concomitant]
     Indication: BACK PAIN
     Dosage: 15 MG
  11. MELOXICAM (GENERIC) [Concomitant]
     Indication: ANTIINFLAMMATORY THERAPY
  12. AMLODIPINE [Concomitant]
     Indication: HYPERTENSION
     Dosage: 5 MG
  13. AMLODIPINE [Concomitant]
     Indication: HEART RATE
  14. HYDROCODONE [Concomitant]
     Indication: BACK PAIN
  15. LUNESTA [Concomitant]
     Indication: SLEEP DISORDER
  16. VITAMIN D3 [Concomitant]
     Indication: SUPPLEMENTATION THERAPY
     Dosage: 2000 RT

REACTIONS (8)
  - Gastrointestinal haemorrhage [Unknown]
  - Haematochezia [Unknown]
  - Large intestinal haemorrhage [Unknown]
  - Abdominal pain upper [Unknown]
  - Disturbance in attention [Unknown]
  - Mental impairment [Unknown]
  - Asthenia [Unknown]
  - Aphagia [Unknown]
